FAERS Safety Report 8859917 (Version 3)
Quarter: 2013Q4

REPORT INFORMATION
  Report Type: Report from Study
  Country: JP (occurrence: JP)
  Receive Date: 20121025
  Receipt Date: 20131001
  Transmission Date: 20140711
  Serious: Yes (Other)
  Sender: FDA-Public Use
  Company Number: JP-VERTEX PHARMACEUTICAL INC.-AE-2012-008853

PATIENT
  Age: 60 Year
  Sex: Male

DRUGS (10)
  1. VX-950 (TELAPREVIR) [Suspect]
     Indication: CHRONIC HEPATITIS C
     Dosage: 2250 MG, QD
     Route: 048
     Dates: start: 20120605, end: 20120827
  2. PEGINTRON [Suspect]
     Indication: CHRONIC HEPATITIS C
     Dosage: 1.26 ?G/KG, QW
     Route: 042
     Dates: start: 20120605
  3. PEGINTRON [Suspect]
     Dosage: 1.3 ?G/KG, QW
     Route: 058
     Dates: end: 20121113
  4. REBETOL [Suspect]
     Indication: CHRONIC HEPATITIS C
     Dosage: 800 MG, QD
     Route: 048
     Dates: start: 20120605, end: 20120717
  5. REBETOL [Suspect]
     Dosage: 600 MG, QD
     Route: 048
     Dates: start: 20120718, end: 20121119
  6. URSO [Concomitant]
     Dosage: 400 MG, QD
     Route: 048
  7. NORVASC [Concomitant]
     Dosage: 5 MG, QD
     Route: 048
  8. ACINON [Concomitant]
     Dosage: 300 MG, QD
     Route: 048
  9. ACINON [Concomitant]
     Dosage: 150 MG, QD
     Route: 048
  10. ALLEGRA [Concomitant]
     Dosage: 120 MG, QD
     Route: 048

REACTIONS (3)
  - Renal impairment [Recovered/Resolved]
  - Rash [Recovered/Resolved]
  - Hyperuricaemia [Recovered/Resolved]
